FAERS Safety Report 8407666-X (Version None)
Quarter: 2012Q2

REPORT INFORMATION
  Report Type: 
  Country: None (occurrence: None)
  Receive Date: 20120604
  Receipt Date: 20120531
  Transmission Date: 20120825
  Serious: Yes (Other)
  Sender: FDA-Public Use
  Company Number: GB-FOUGERA-2012FO001125

PATIENT
  Age: 63 Year
  Sex: Male

DRUGS (2)
  1. SOLARAZE [Suspect]
     Route: 061
  2. SOLARAZE [Suspect]
     Indication: ACTINIC KERATOSIS
     Route: 061

REACTIONS (2)
  - ERYTHEMA [None]
  - PEMPHIGOID [None]
